FAERS Safety Report 5381368-9 (Version None)
Quarter: 2007Q2

REPORT INFORMATION
  Report Type: 
  Country: None (occurrence: None)
  Receive Date: 20070629
  Receipt Date: 20070320
  Transmission Date: 20071010
  Serious: Yes (Hospitalization)
  Sender: FDA-Public Use
  Company Number: US-JNJFOC-20070305047

PATIENT
  Sex: Male

DRUGS (3)
  1. ULTRAM ER [Suspect]
     Indication: ROTATOR CUFF SYNDROME
     Dosage: 100 MG, IN 1 DAY, ORAL; 200 MG, IN 1 DAY, ORAL
     Route: 048
     Dates: start: 20070101, end: 20070101
  2. PROZAC [Concomitant]
  3. ATRIAL FIBRILLATION [Concomitant]

REACTIONS (1)
  - CONVULSION [None]
